FAERS Safety Report 5480498-0 (Version None)
Quarter: 2007Q4

REPORT INFORMATION
  Report Type: 
  Country: None (occurrence: None)
  Receive Date: 20071009
  Receipt Date: 20070928
  Transmission Date: 20080405
  Serious: Yes (Hospitalization)
  Sender: FDA-Public Use
  Company Number: FR-ASTRAZENECA-2007SE05367

PATIENT
  Age: 0 Day
  Sex: Male
  Weight: 3 kg

DRUGS (1)
  1. COKENZEN [Suspect]
     Indication: HYPERTENSION
     Route: 064
     Dates: end: 20070308

REACTIONS (2)
  - CYANOSIS [None]
  - HYPOTONIA [None]
